FAERS Safety Report 6996220-2 (Version None)
Quarter: 2010Q3

REPORT INFORMATION
  Report Type: 
  Country: None (occurrence: None)
  Receive Date: 20100918
  Receipt Date: 20081218
  Transmission Date: 20110219
  Serious: No
  Sender: FDA-Public Use
  Company Number: US-WYE-H07378108

PATIENT
  Age: 20 Year
  Sex: Male

DRUGS (3)
  1. EFFEXOR XR [Suspect]
     Indication: MAJOR DEPRESSION
     Dosage: UNKNOWN
     Route: 048
     Dates: start: 20080801, end: 20080901
  2. EFFEXOR XR [Suspect]
     Route: 048
     Dates: start: 20080901, end: 20081001
  3. EFFEXOR XR [Suspect]
     Route: 048
     Dates: start: 20081001

REACTIONS (9)
  - AFFECTIVE DISORDER [None]
  - ANXIETY [None]
  - CRYING [None]
  - DEPRESSED MOOD [None]
  - DRUG EFFECT DECREASED [None]
  - DRUG WITHDRAWAL SYNDROME [None]
  - EUPHORIC MOOD [None]
  - MOOD SWINGS [None]
  - NERVOUSNESS [None]
